FAERS Safety Report 7242809-5 (Version None)
Quarter: 2011Q1

REPORT INFORMATION
  Report Type: 
  Country: None (occurrence: None)
  Receive Date: 20110125
  Receipt Date: 20110118
  Transmission Date: 20110831
  Serious: Yes (Other)
  Sender: FDA-Public Use
  Company Number: US-JNJFOC-20110105423

PATIENT
  Sex: Male
  Weight: 16.33 kg

DRUGS (2)
  1. RISPERIDONE [Suspect]
     Indication: AGGRESSION
     Dosage: 0.125 MG/SOLUTION, 1 IN AM AND 0.250 MG/ SOLUTION, 1 IN PM
     Route: 048
  2. RISPERIDONE [Suspect]
     Indication: AUTISM
     Dosage: 0.125 MG/SOLUTION, 1 IN AM AND 0.250 MG/ SOLUTION, 1 IN PM
     Route: 048

REACTIONS (3)
  - AGGRESSION [None]
  - BLOOD LEAD INCREASED [None]
  - AUTISM [None]
